FAERS Safety Report 4274034-4 (Version None)
Quarter: 2004Q1

REPORT INFORMATION
  Report Type: 
  Country: None (occurrence: None)
  Receive Date: 20040115
  Receipt Date: 20040105
  Transmission Date: 20041129
  Serious: Yes (Disabling)
  Sender: FDA-Public Use
  Company Number: 2004193447FR

PATIENT
  Age: 35 Year
  Sex: Male

DRUGS (2)
  1. SULFASALAZINE [Suspect]
     Indication: ANKYLOSING SPONDYLITIS
     Dosage: ORAL
     Route: 048
  2. CELEBREX [Concomitant]

REACTIONS (3)
  - AZOOSPERMIA [None]
  - SEMEN ABNORMAL [None]
  - TERATOSPERMIA [None]
